FAERS Safety Report 20504795 (Version 1)
Quarter: 2022Q1

REPORT INFORMATION
  Report Type: Spontaneous
  Country: US (occurrence: US)
  Receive Date: 20220223
  Receipt Date: 20220223
  Transmission Date: 20220423
  Serious: No
  Sender: FDA-Public Use
  Company Number: US-GLAXOSMITHKLINE-USCH2022AMR007123

PATIENT
  Sex: Female

DRUGS (3)
  1. ADVIL [Suspect]
     Active Substance: IBUPROFEN
     Indication: Pyrexia
     Dosage: UNK
  2. TYLENOL [Concomitant]
     Active Substance: ACETAMINOPHEN
     Indication: Pyrexia
     Dosage: UNK
  3. SOTROVIMAB [Concomitant]
     Active Substance: SOTROVIMAB
     Indication: COVID-19
     Dosage: UNK
     Dates: start: 20220204

REACTIONS (1)
  - Drug ineffective [Unknown]
